FAERS Safety Report 12350216 (Version 3)
Quarter: 2016Q3

REPORT INFORMATION
  Report Type: Spontaneous
  Country: US (occurrence: US)
  Receive Date: 20160510
  Receipt Date: 20160802
  Transmission Date: 20161109
  Serious: Yes (Other)
  Sender: FDA-Public Use
  Company Number: US-ASTELLAS-2016US017768

PATIENT
  Sex: Male

DRUGS (2)
  1. PROGRAF [Suspect]
     Active Substance: TACROLIMUS\TACROLIMUS ANHYDROUS
     Indication: RENAL AND PANCREAS TRANSPLANT
     Dosage: 5 MG, ONCE DAILY (2 MG Q AM AND 3 MG PM)
     Route: 048
     Dates: start: 1990
  2. INSULIN [Concomitant]
     Active Substance: INSULIN NOS
     Indication: PRODUCT USED FOR UNKNOWN INDICATION
     Dosage: UNK UNK, UNKNOWN FREQ.
     Route: 065

REACTIONS (4)
  - Pancreas transplant [Not Recovered/Not Resolved]
  - Off label use [Unknown]
  - Renal transplant [Recovering/Resolving]
  - Transplant failure [Unknown]

NARRATIVE: CASE EVENT DATE: 1990
